FAERS Safety Report 7524482-1 (Version None)
Quarter: 2011Q2

REPORT INFORMATION
  Report Type: 
  Country: None (occurrence: None)
  Receive Date: 20110606
  Receipt Date: 20110513
  Transmission Date: 20111010
  Serious: Yes (Hospitalization, Other)
  Sender: FDA-Public Use
  Company Number: US-BAYER-2010-006640

PATIENT
  Age: 36 Year
  Sex: Female
  Weight: 57 kg

DRUGS (2)
  1. YAZ [Suspect]
     Indication: CONTRACEPTION
     Dosage: UNK
     Dates: start: 20080101
  2. MOTRIN [Concomitant]
     Dosage: 200 MG, UNK

REACTIONS (6)
  - PULMONARY EMBOLISM [None]
  - PULMONARY INFARCTION [None]
  - INJURY [None]
  - HAEMOPTYSIS [None]
  - DYSPNOEA [None]
  - PAIN [None]
